FAERS Safety Report 7067663-6 (Version None)
Quarter: 2010Q4

REPORT INFORMATION
  Report Type: 
  Country: None (occurrence: None)
  Receive Date: 20101028
  Receipt Date: 20101019
  Transmission Date: 20110411
  Serious: No
  Sender: FDA-Public Use
  Company Number: US-JNJFOC-20101006258

PATIENT
  Sex: Male
  Weight: 90.72 kg

DRUGS (15)
  1. FENTANYL CITRATE [Suspect]
     Indication: BONE PAIN
     Route: 062
  2. FENTANYL CITRATE [Suspect]
     Route: 062
  3. FENTANYL CITRATE [Suspect]
     Indication: PAIN IN EXTREMITY
     Route: 062
  4. FENTANYL CITRATE [Suspect]
     Route: 062
  5. FENTANYL CITRATE [Suspect]
     Indication: BACK PAIN
     Route: 062
  6. FENTANYL CITRATE [Suspect]
     Route: 062
  7. FENTANYL [Suspect]
     Indication: BONE PAIN
     Route: 062
  8. FENTANYL [Suspect]
     Indication: PAIN IN EXTREMITY
     Route: 062
  9. FENTANYL [Suspect]
     Indication: BACK PAIN
     Route: 062
  10. FENTANYL CITRATE [Suspect]
     Route: 062
  11. FENTANYL CITRATE [Suspect]
     Route: 062
  12. FENTANYL CITRATE [Suspect]
     Route: 062
  13. XANAX [Concomitant]
     Indication: ANXIETY
     Route: 048
  14. EFFEXOR [Concomitant]
     Indication: DEPRESSION
     Route: 048
  15. TRAZODONE [Concomitant]
     Indication: SLEEP DISORDER THERAPY
     Route: 048

REACTIONS (2)
  - DRUG INEFFECTIVE [None]
  - WRONG TECHNIQUE IN DRUG USAGE PROCESS [None]
